FAERS Safety Report 24290620 (Version 1)
Quarter: 2024Q3

REPORT INFORMATION
  Report Type: Spontaneous
  Country: GB (occurrence: GB)
  Receive Date: 20240906
  Receipt Date: 20240906
  Transmission Date: 20241017
  Serious: Yes (Other)
  Sender: RANBAXY
  Company Number: GB-MHRA-MED-202408131558191130-RLPGY

PATIENT
  Age: 25 Year
  Sex: Male

DRUGS (1)
  1. ISOTRETINOIN [Suspect]
     Active Substance: ISOTRETINOIN
     Indication: Acne
     Dosage: UNK
     Route: 065
     Dates: start: 20240501, end: 20240719

REACTIONS (6)
  - Psychotic disorder [Recovering/Resolving]
  - Mood swings [Recovering/Resolving]
  - Hallucination [Unknown]
  - Delusion [Unknown]
  - Personality change [Unknown]
  - Somniphobia [Unknown]

NARRATIVE: CASE EVENT DATE: 20240717
